FAERS Safety Report 8995851 (Version 5)
Quarter: 2013Q3

REPORT INFORMATION
  Report Type: Report from Study
  Country: JP (occurrence: JP)
  Receive Date: 20130103
  Receipt Date: 20130802
  Transmission Date: 20140515
  Serious: Yes (Hospitalization, Other)
  Sender: FDA-Public Use
  Company Number: JP-ABBOTT-12P-087-1028977-00

PATIENT
  Age: 39 Year
  Sex: Female
  Weight: 60.1 kg

DRUGS (9)
  1. HUMIRA [Suspect]
     Indication: RHEUMATOID ARTHRITIS
     Route: 058
     Dates: start: 20121006, end: 20121117
  2. METHOTREXATE [Suspect]
     Indication: RHEUMATOID ARTHRITIS
     Route: 048
     Dates: start: 20120609, end: 20121118
  3. CELECOXIB [Concomitant]
     Indication: RHEUMATOID ARTHRITIS
     Route: 048
     Dates: start: 20120605, end: 20121123
  4. FOLIC ACID [Concomitant]
     Indication: PROPHYLAXIS
     Route: 048
     Dates: start: 20120609, end: 20121118
  5. FOLIC ACID [Concomitant]
     Indication: FOLATE DEFICIENCY
  6. FOLIC ACID [Concomitant]
     Indication: PROPHYLAXIS
  7. FOLIC ACID [Concomitant]
     Indication: ADVERSE REACTION
  8. FOLIC ACID [Concomitant]
     Indication: PROPHYLAXIS
  9. FOLIC ACID [Concomitant]
     Indication: ADVERSE REACTION

REACTIONS (11)
  - Diffuse alveolar damage [Recovered/Resolved]
  - Pneumocystis jirovecii pneumonia [Recovered/Resolved]
  - Respiratory failure [Recovered/Resolved]
  - Vomiting [Unknown]
  - Nausea [Unknown]
  - Hepatosplenomegaly [Recovered/Resolved]
  - Hepatic steatosis [Recovered/Resolved]
  - Neoplasm skin [Unknown]
  - Renal cyst [Unknown]
  - Lung disorder [Unknown]
  - Blood beta-D-glucan increased [Unknown]
